FAERS Safety Report 21416625 (Version 1)
Quarter: 2022Q4

REPORT INFORMATION
  Report Type: Spontaneous
  Country: US (occurrence: US)
  Receive Date: 20221006
  Receipt Date: 20221006
  Transmission Date: 20230112
  Serious: No
  Sender: FDA-Public Use
  Company Number: US-ALLERGAN-2222682US

PATIENT

DRUGS (3)
  1. VRAYLAR [Suspect]
     Active Substance: CARIPRAZINE
     Indication: Bipolar I disorder
     Dosage: 3 MG
     Dates: start: 202104
  2. VRAYLAR [Suspect]
     Active Substance: CARIPRAZINE
     Indication: Bipolar I disorder
  3. LAMOTRIGINE [Concomitant]
     Active Substance: LAMOTRIGINE

REACTIONS (3)
  - Foot fracture [Unknown]
  - White blood cell count decreased [Unknown]
  - Temperature regulation disorder [Unknown]
